FAERS Safety Report 5754848-1 (Version None)
Quarter: 2008Q2

REPORT INFORMATION
  Report Type: 
  Country: None (occurrence: None)
  Receive Date: 20080527
  Receipt Date: 20080515
  Transmission Date: 20081010
  Serious: Yes (Life-Threatening, Hospitalization)
  Sender: FDA-Public Use
  Company Number: 028-20785-08050950

PATIENT
  Age: 45 Year
  Sex: Male

DRUGS (4)
  1. THALOMID [Suspect]
     Indication: MULTIPLE MYELOMA
     Dosage: 200 MG, 4 IN 1 D, ORAL; 50 MG GRADUALLY INCREASED TO 150 MG, DAILY, ORAL
     Route: 048
     Dates: end: 20080325
  2. THALOMID [Suspect]
     Indication: MULTIPLE MYELOMA
     Dosage: 200 MG, 4 IN 1 D, ORAL; 50 MG GRADUALLY INCREASED TO 150 MG, DAILY, ORAL
     Route: 048
     Dates: start: 20080403
  3. DEXAMETHASONE TAB [Concomitant]
  4. PAMIDRONATE DISODIUM [Concomitant]

REACTIONS (6)
  - ASTHENIA [None]
  - COLITIS [None]
  - CONJUNCTIVITIS [None]
  - LETHARGY [None]
  - MALAISE [None]
  - RASH GENERALISED [None]
